FAERS Safety Report 7016458-8 (Version None)
Quarter: 2010Q3

REPORT INFORMATION
  Report Type: 
  Country: None (occurrence: None)
  Receive Date: 20100909
  Receipt Date: 20100811
  Transmission Date: 20110219
  Serious: Yes (Other)
  Sender: FDA-Public Use
  Company Number: 2010SP043938

PATIENT
  Age: 46 Year
  Sex: Male

DRUGS (1)
  1. SAPHRIS [Suspect]
     Indication: SCHIZOPHRENIA
     Dosage: 10 MG;QD
     Route: 060

REACTIONS (2)
  - AKATHISIA [None]
  - INAPPROPRIATE SCHEDULE OF DRUG ADMINISTRATION [None]
